FAERS Safety Report 25376064 (Version 3)
Quarter: 2025Q3

REPORT INFORMATION
  Report Type: Report from Study
  Country: US (occurrence: US)
  Receive Date: 20250529
  Receipt Date: 20250925
  Transmission Date: 20251020
  Serious: Yes (Hospitalization, Other)
  Sender: ALEXION PHARMACEUTICALS
  Company Number: US-AstraZeneca-CH-00777953A

PATIENT
  Age: 39 Year
  Sex: Female

DRUGS (4)
  1. SOLIRIS [Suspect]
     Active Substance: ECULIZUMAB
     Indication: Neuromyelitis optica spectrum disorder
     Dosage: 1200 MILLIGRAM, Q2W
     Dates: start: 202211, end: 202411
  2. ULTOMIRIS [Suspect]
     Active Substance: RAVULIZUMAB-CWVZ
     Indication: Neuromyelitis optica spectrum disorder
     Route: 065
  3. LYRICA [Concomitant]
     Active Substance: PREGABALIN
     Dosage: 50 MILLIGRAM, BID
     Dates: start: 20250125
  4. Calamine;Pramoxine hydrochloride [Concomitant]
     Dosage: 10 MILLIGRAM PER MILLILITRE, QD
     Dates: start: 20221230

REACTIONS (21)
  - Neuromyelitis optica spectrum disorder [Unknown]
  - Rheumatoid arthritis [Unknown]
  - Lipodystrophy acquired [Unknown]
  - Neuropathy peripheral [Not Recovered/Not Resolved]
  - Cholecystitis [Unknown]
  - Pulmonary embolism [Unknown]
  - Neurogenic bladder [Unknown]
  - Neuralgia [Unknown]
  - Nerve compression [Unknown]
  - Hypoaesthesia [Unknown]
  - Paraesthesia [Recovered/Resolved]
  - Insurance issue [Unknown]
  - Cholelithiasis [Unknown]
  - Obesity [Unknown]
  - Urinary tract infection [Not Recovered/Not Resolved]
  - Skin hypopigmentation [Unknown]
  - Intertrigo [Unknown]
  - Muscular weakness [Unknown]
  - Dysuria [Unknown]
  - Iron deficiency anaemia [Unknown]
  - Urine odour abnormal [Unknown]
